FAERS Safety Report 18772528 (Version 1)
Quarter: 2021Q1

REPORT INFORMATION
  Report Type: Spontaneous
  Country: US (occurrence: US)
  Receive Date: 20210121
  Receipt Date: 20210121
  Transmission Date: 20210419
  Serious: No
  Sender: FDA-Public Use
  Company Number: None

PATIENT
  Age: 67 Year
  Sex: Male
  Weight: 86 kg

DRUGS (1)
  1. CASIRIVIMAB/IMDEVIMAB [Suspect]
     Active Substance: CASIRIVIMAB\IMDEVIMAB
     Indication: COVID-19
     Dosage: ?          OTHER FREQUENCY:ONCE;?
     Route: 042

REACTIONS (8)
  - Chills [None]
  - Nausea [None]
  - Fall [None]
  - Fatigue [None]
  - Contusion [None]
  - Injury [None]
  - Pain [None]
  - Loss of consciousness [None]

NARRATIVE: CASE EVENT DATE: 20210120
